FAERS Safety Report 4721347-5 (Version None)
Quarter: 2005Q3

REPORT INFORMATION
  Report Type: 
  Country: None (occurrence: None)
  Receive Date: 20050721
  Receipt Date: 20040708
  Transmission Date: 20060218
  Serious: No
  Sender: FDA-Public Use
  Company Number: US-BRISTOL-MYERS SQUIBB COMPANY-12635835

PATIENT
  Age: 60 Year
  Sex: Female
  Weight: 61 kg

DRUGS (1)
  1. COUMADIN [Suspect]
     Indication: THROMBOPHLEBITIS
     Route: 048
     Dates: start: 19660101

REACTIONS (1)
  - INTERNATIONAL NORMALISED RATIO DECREASED [None]
